FAERS Safety Report 17828248 (Version 5)
Quarter: 2020Q4

REPORT INFORMATION
  Report Type: Spontaneous
  Country: US (occurrence: US)
  Receive Date: 20200527
  Receipt Date: 20201120
  Transmission Date: 20210113
  Serious: Yes (Hospitalization)
  Sender: FDA-Public Use
  Company Number: US-SHIRE-US202017358

PATIENT

DRUGS (4)
  1. GATTEX [Suspect]
     Active Substance: TEDUGLUTIDE\WATER
     Indication: GASTROINTESTINAL DISORDER
     Dosage: 0.125 (UNIT UNKNOWN)
     Route: 058
     Dates: start: 20170926
  2. GATTEX [Suspect]
     Active Substance: TEDUGLUTIDE\WATER
     Indication: GASTROINTESTINAL DISORDER
     Dosage: 0.125 (UNIT UNKNOWN)
     Route: 058
     Dates: start: 20170926
  3. GATTEX [Suspect]
     Active Substance: TEDUGLUTIDE\WATER
     Indication: GASTROINTESTINAL DISORDER
     Dosage: 0.125 (UNIT UNKNOWN)
     Route: 058
     Dates: start: 20170926
  4. GATTEX [Suspect]
     Active Substance: TEDUGLUTIDE\WATER
     Indication: GASTROINTESTINAL DISORDER
     Dosage: 0.125 (UNIT UNKNOWN)
     Route: 058
     Dates: start: 20170926

REACTIONS (6)
  - Inability to afford medication [Unknown]
  - Blood phosphorus decreased [Unknown]
  - Hypotension [Unknown]
  - Hypertension [Unknown]
  - Hernia pain [Unknown]
  - Therapy interrupted [Unknown]

NARRATIVE: CASE EVENT DATE: 20200504
